FAERS Safety Report 8416887-1 (Version None)
Quarter: 2012Q2

REPORT INFORMATION
  Report Type: 
  Country: None (occurrence: None)
  Receive Date: 20120606
  Receipt Date: 20120525
  Transmission Date: 20120825
  Serious: Yes (Hospitalization, Other)
  Sender: FDA-Public Use
  Company Number: JP-BRISTOL-MYERS SQUIBB COMPANY-16585598

PATIENT
  Age: 50 Year
  Sex: Female
  Weight: 48 kg

DRUGS (1)
  1. TAXOL [Suspect]
     Indication: BREAST CANCER
     Dosage: RECEIVED 9 DOSE
     Route: 042
     Dates: start: 20120201, end: 20120418

REACTIONS (5)
  - PERICARDIAL EFFUSION [None]
  - DEHYDRATION [None]
  - HYPOTENSION [None]
  - PLEURAL EFFUSION [None]
  - CARDIAC TAMPONADE [None]
